FAERS Safety Report 7988761-6 (Version None)
Quarter: 2011Q4

REPORT INFORMATION
  Report Type: 
  Country: None (occurrence: None)
  Receive Date: 20111219
  Receipt Date: 20111209
  Transmission Date: 20120403
  Serious: Yes (Hospitalization, Other)
  Sender: FDA-Public Use
  Company Number: 2007BI010979

PATIENT
  Age: 52 Year
  Sex: Female
  Weight: 73 kg

DRUGS (5)
  1. NORVASC [Concomitant]
     Indication: HYPERTENSION
  2. LABETALOL HCL [Concomitant]
     Indication: HYPERTENSION
  3. AVONEX [Suspect]
     Route: 030
     Dates: start: 20030801
  4. HYDRALAZINE HCL [Concomitant]
     Indication: HYPERTENSION
  5. AVONEX [Suspect]
     Indication: MULTIPLE SCLEROSIS
     Route: 030
     Dates: start: 19960101, end: 20030801

REACTIONS (6)
  - CARDIAC DISORDER [None]
  - GAIT DISTURBANCE [None]
  - PROCEDURAL HYPERTENSION [None]
  - INJECTION SITE HAEMORRHAGE [None]
  - INGROWING NAIL [None]
  - HIP ARTHROPLASTY [None]
